FAERS Safety Report 4455721-1 (Version None)
Quarter: 2004Q3

REPORT INFORMATION
  Report Type: 
  Country: None (occurrence: None)
  Receive Date: 20040922
  Receipt Date: 20040422
  Transmission Date: 20050211
  Serious: Yes (Life-Threatening, Hospitalization)
  Sender: FDA-Public Use
  Company Number: GB-BRISTOL-MYERS SQUIBB COMPANY-12567566

PATIENT
  Age: 78 Year
  Sex: Male
  Weight: 91 kg

DRUGS (5)
  1. CISPLATIN [Suspect]
     Indication: BLADDER CANCER
     Dates: start: 20040316, end: 20040316
  2. PACLITAXEL [Suspect]
     Indication: BLADDER CANCER
     Dosage: 1ST DOSE - 16-MAR-2004
     Dates: start: 20040323, end: 20040323
  3. GEMCITABINE [Suspect]
     Indication: BLADDER CANCER
     Dosage: 1ST DOSE - 17-MAR-2004
     Dates: start: 20040323, end: 20040323
  4. WARFARIN SODIUM [Concomitant]
     Dates: start: 19990216
  5. PROCHLORPERAZINE [Concomitant]
     Dates: start: 19980101

REACTIONS (3)
  - ATRIAL FIBRILLATION [None]
  - LEFT VENTRICULAR FAILURE [None]
  - NEUTROPENIC SEPSIS [None]
